FAERS Safety Report 20264189 (Version 1)
Quarter: 2021Q4

REPORT INFORMATION
  Report Type: Spontaneous
  Country: US (occurrence: US)
  Receive Date: 20211231
  Receipt Date: 20211231
  Transmission Date: 20220303
  Serious: Yes (Hospitalization, Other)
  Sender: FDA-Public Use
  Company Number: US-Accord-248679

PATIENT
  Age: 61 Year
  Sex: Male

DRUGS (5)
  1. DEXMEDETOMIDINE HYDROCHLORIDE [Suspect]
     Active Substance: DEXMEDETOMIDINE HYDROCHLORIDE
     Indication: Sedation
     Dosage: AT A RATE OF 0.2 UG/KG/HR AND UP TITRATED TO 1.5 UG/KG/HR
  2. THIAMINE [Concomitant]
     Active Substance: THIAMINE
  3. FOLATE SODIUM [Concomitant]
     Active Substance: FOLATE SODIUM
  4. LORAZEPAM [Concomitant]
     Active Substance: LORAZEPAM
     Dosage: TOTAL OF 6 MG, 2 MG EACH IN THE FIRST 24 HOURS
  5. CHLORDIAZEPOXIDE [Concomitant]
     Active Substance: CHLORDIAZEPOXIDE
     Dosage: 50 MG EVERY SIX HOURS?UP-TITRATED TO 100 MG EVERY SIX HOURS

REACTIONS (3)
  - Intestinal pseudo-obstruction [Recovered/Resolved]
  - Respiratory failure [Recovered/Resolved]
  - Pneumonia aspiration [Recovered/Resolved]
